FAERS Safety Report 8240835-0 (Version None)
Quarter: 2012Q1

REPORT INFORMATION
  Report Type: 
  Country: None (occurrence: None)
  Receive Date: 20120328
  Receipt Date: 20120327
  Transmission Date: 20120608
  Serious: Yes (Other)
  Sender: FDA-Public Use
  Company Number: PHHO2011DE13576

PATIENT
  Sex: Female
  Weight: 65 kg

DRUGS (2)
  1. EVEROLIMUS [Suspect]
     Indication: MALIGNANT NEOPLASM OF ISLETS OF LANGERHANS
     Dosage: 10 MG, BID
     Route: 048
     Dates: start: 20070404, end: 20110621
  2. FLUTICASONE PROPIONATE/SALMETEROL [Concomitant]
     Indication: CHRONIC OBSTRUCTIVE PULMONARY DISEASE
     Dosage: ONE PUFF/ DAY
     Dates: start: 20100101, end: 20110622

REACTIONS (2)
  - PNEUMONITIS [None]
  - CONCOMITANT DISEASE PROGRESSION [None]
